FAERS Safety Report 14682657 (Version 1)
Quarter: 2018Q1

REPORT INFORMATION
  Report Type: Spontaneous
  Country: LB (occurrence: LB)
  Receive Date: 20180327
  Receipt Date: 20180327
  Transmission Date: 20180509
  Serious: Yes (Other)
  Sender: FDA-Public Use
  Company Number: LB-CHARTWELL PHARMA-2044573

PATIENT
  Age: 30 Year
  Sex: Female

DRUGS (1)
  1. ONDANSETRON [Suspect]
     Active Substance: ONDANSETRON
     Indication: VOMITING IN PREGNANCY

REACTIONS (2)
  - Exposure during pregnancy [Unknown]
  - Pityriasis rosea [Recovered/Resolved]
